FAERS Safety Report 9072715 (Version 1)
Quarter: 2013Q1

REPORT INFORMATION
  Report Type: Report from Study
  Country: US (occurrence: US)
  Receive Date: 20130129
  Receipt Date: 20130129
  Transmission Date: 20140127
  Serious: No
  Sender: FDA-Public Use
  Company Number: US-ABBOTT-12P-163-0920491-00

PATIENT
  Age: 41 Year
  Sex: Female

DRUGS (22)
  1. HUMIRA 40 MG/0.8 ML PEN [Suspect]
     Indication: CROHN^S DISEASE
     Dates: start: 20120314, end: 20120314
  2. HUMIRA 40 MG/0.8 ML PEN [Suspect]
     Dosage: LOADING DOSE
     Dates: start: 20120315, end: 20120315
  3. HUMIRA 40 MG/0.8 ML PEN [Suspect]
     Dosage: LOADING DOSE
     Dates: start: 20120328, end: 20120328
  4. HUMIRA 40 MG/0.8 ML PEN [Suspect]
  5. PROTONIX [Concomitant]
     Indication: GASTROOESOPHAGEAL REFLUX DISEASE
  6. SERTRALINE [Concomitant]
     Indication: ANXIETY
     Dosage: 100 MG, 1/2 IN 1 D, AT BEDTIME
  7. SERTRALINE [Concomitant]
     Indication: DEPRESSION
  8. CYCLOBENZAPRINE [Concomitant]
     Indication: FIBROMYALGIA
     Dosage: 10 MG IN A.M. AND BEDTIME
  9. SPIRONOLACTONE [Concomitant]
     Indication: FLUID RETENTION
     Dosage: 25 MG X 1 TAB IN A.M. AND AT NOON
  10. CLONAZEPAM [Concomitant]
     Indication: INSOMNIA
     Dosage: 1 MG X 2 TABS AT BEDTIME
  11. ALLOPURINOL [Concomitant]
     Indication: BLOOD URIC ACID INCREASED
     Dosage: 100 MG DAILY
  12. AMITRIPTYLINE [Concomitant]
     Indication: FEELING OF RELAXATION
     Dosage: 50MG X 1 TAB AT LUNCH AND 2 TABS AT BEDTIME
  13. VIT D [Concomitant]
     Indication: VITAMIN D DECREASED
  14. SAVELLA [Concomitant]
     Indication: FIBROMYALGIA
     Dosage: 50 MG X 1 TAB IN A.M. AND AT BEDTIME
  15. NABUMETONE [Concomitant]
     Indication: RHEUMATOID ARTHRITIS
     Dosage: 500 MG X 1 TAB IN A.M. AND AT BEDTIME
  16. NABUMETONE [Concomitant]
     Indication: GASTROINTESTINAL PAIN
  17. TOPIRAMATE [Concomitant]
     Indication: MIGRAINE
     Dosage: 25 MG X 3 TAB IN A.M. AND AT BEDTIME
  18. LORAZEPAM [Concomitant]
     Indication: FIBROMYALGIA
  19. PROMETHAZINE [Concomitant]
     Indication: NAUSEA
     Dosage: 25MG EVERY 4-6 HOURS AS REQUIRED
  20. B12 [Concomitant]
     Indication: VITAMIN SUPPLEMENTATION
     Route: 050
  21. ATENOLOL [Concomitant]
     Indication: HYPERTENSION
  22. CRANBERRY [Concomitant]
     Indication: VITAMIN SUPPLEMENTATION
     Dosage: GEL CAPS

REACTIONS (2)
  - Pruritus [Not Recovered/Not Resolved]
  - Rash [Not Recovered/Not Resolved]
